FAERS Safety Report 7729013-9 (Version None)
Quarter: 2011Q3

REPORT INFORMATION
  Report Type: 
  Country: None (occurrence: None)
  Receive Date: 20110831
  Receipt Date: 20110831
  Transmission Date: 20111222
  Serious: Yes (Hospitalization)
  Sender: FDA-Public Use
  Company Number: None

PATIENT
  Age: 79 Year
  Sex: Male
  Weight: 90 kg

DRUGS (1)
  1. IBUPROFEN [Suspect]
     Indication: PAIN
     Dosage: 10-12 TAB EVERY DAY PO
     Route: 048
     Dates: end: 20110825

REACTIONS (4)
  - GASTRIC ULCER HAEMORRHAGE [None]
  - RENAL FAILURE ACUTE [None]
  - SYNCOPE [None]
  - DUODENAL ULCER HAEMORRHAGE [None]
